FAERS Safety Report 10139005 (Version 1)
Quarter: 2014Q2

REPORT INFORMATION
  Report Type: Spontaneous
  Country: US (occurrence: US)
  Receive Date: 20140429
  Receipt Date: 20140429
  Transmission Date: 20141212
  Serious: No
  Sender: FDA-Public Use
  Company Number: US-PFIZER INC-2014114739

PATIENT
  Age: 69 Year
  Sex: Female
  Weight: 71.66 kg

DRUGS (5)
  1. PRISTIQ [Suspect]
     Indication: DEPRESSION
     Dosage: 50 MG, DAILY
     Dates: start: 2013
  2. NORVASC [Concomitant]
     Indication: BLOOD PRESSURE ABNORMAL
     Dosage: 10 MG, DAILY
  3. TRAMADOL [Concomitant]
     Indication: PAIN
     Dosage: 50 MG, AS NEEDED
  4. CELEBREX [Concomitant]
     Dosage: UNK
  5. SAVELLA [Concomitant]
     Indication: FIBROMYALGIA
     Dosage: 25 MG, DAILY

REACTIONS (1)
  - Drug ineffective [Unknown]
